FAERS Safety Report 10501147 (Version 1)
Quarter: 2014Q4

REPORT INFORMATION
  Report Type: Spontaneous
  Country: US (occurrence: None)
  Receive Date: 20141006
  Receipt Date: 20141006
  Transmission Date: 20150528
  Serious: No
  Sender: FDA-Public Use
  Company Number: None

PATIENT
  Sex: Female

DRUGS (1)
  1. CREST PRO-HEALTH CLINICAL [Suspect]
     Active Substance: CETYLPYRIDINIUM CHLORIDE
     Dates: start: 20140713

REACTIONS (5)
  - Oral pain [None]
  - Gingival pain [None]
  - Chemical injury [None]
  - Mouth ulceration [None]
  - Activities of daily living impaired [None]

NARRATIVE: CASE EVENT DATE: 20140713
